FAERS Safety Report 6339222-1 (Version None)
Quarter: 2009Q3

REPORT INFORMATION
  Report Type: 
  Country: None (occurrence: None)
  Receive Date: 20090903
  Receipt Date: 20090831
  Transmission Date: 20100115
  Serious: Yes (Other)
  Sender: FDA-Public Use
  Company Number: US-GENENTECH-248068

PATIENT
  Sex: Female
  Weight: 57 kg

DRUGS (2)
  1. RITUXIMAB [Suspect]
     Indication: RHEUMATOID ARTHRITIS
     Dosage: 1000 MG, Q6M
     Route: 042
     Dates: start: 20070314
  2. RITUXIMAB [Suspect]
     Dosage: 40 MG, Q6M
     Route: 042
     Dates: start: 20070829

REACTIONS (1)
  - SERUM SICKNESS [None]
